FAERS Safety Report 23681110 (Version 1)
Quarter: 2024Q1

REPORT INFORMATION
  Report Type: Spontaneous
  Country: CZ (occurrence: CZ)
  Receive Date: 20240328
  Receipt Date: 20240328
  Transmission Date: 20240410
  Serious: Yes (Other)
  Sender: FDA-Public Use
  Company Number: None

PATIENT
  Age: 48 Year
  Sex: Female

DRUGS (7)
  1. PREGABALIN [Suspect]
     Active Substance: PREGABALIN
     Indication: Migraine prophylaxis
     Dosage: 2X 150 MG FOR 12 MONTHS
     Route: 065
  2. METOPROLOL [Suspect]
     Active Substance: METOPROLOL
     Indication: Migraine
     Dosage: 50 MG, BID/ 2X 50 MG FOR THREE MONTHS
     Route: 065
     Dates: start: 2013
  3. VALPROIC ACID [Suspect]
     Active Substance: VALPROIC ACID
     Indication: Migraine prophylaxis
     Dosage: 2 TIMES 300 MG FOR FIVE MONTHS
     Route: 065
  4. VALPROATE [Suspect]
     Active Substance: VALPROIC ACID
     Indication: Migraine
     Dosage: 300 MG, BID
     Route: 065
     Dates: start: 2013
  5. VENLAFAXINE [Concomitant]
     Active Substance: VENLAFAXINE HYDROCHLORIDE
     Indication: Migraine prophylaxis
     Route: 065
  6. AMITRIPTYLINE [Concomitant]
     Active Substance: AMITRIPTYLINE
     Indication: Migraine prophylaxis
     Dosage: 50 MILLIGRAM DAILY;
     Route: 065
  7. CINNARIZINE [Concomitant]
     Active Substance: CINNARIZINE
     Indication: Migraine prophylaxis
     Dosage: 2X 75 MG FOR THREE MONTHS
     Route: 065

REACTIONS (4)
  - Leukopenia [Recovered/Resolved]
  - Therapeutic product effect decreased [Unknown]
  - Product use in unapproved indication [Unknown]
  - Therapy partial responder [Unknown]

NARRATIVE: CASE EVENT DATE: 20190101
